FAERS Safety Report 6464110-X (Version None)
Quarter: 2009Q4

REPORT INFORMATION
  Report Type: 
  Country: None (occurrence: None)
  Receive Date: 20091130
  Receipt Date: 20091130
  Transmission Date: 20100525
  Serious: Yes (Life-Threatening)
  Sender: FDA-Public Use
  Company Number: None

PATIENT
  Sex: Male
  Weight: 79.3795 kg

DRUGS (1)
  1. CIGS ALL WITH FSC [Suspect]

REACTIONS (3)
  - MALAISE [None]
  - PRODUCT CONTAMINATION CHEMICAL [None]
  - PRODUCT QUALITY ISSUE [None]
